FAERS Safety Report 7429179-4 (Version None)
Quarter: 2011Q2

REPORT INFORMATION
  Report Type: 
  Country: None (occurrence: None)
  Receive Date: 20110421
  Receipt Date: 20110413
  Transmission Date: 20111010
  Serious: Yes (Hospitalization)
  Sender: FDA-Public Use
  Company Number: FR-ROCHE-771357

PATIENT
  Sex: Male
  Weight: 86 kg

DRUGS (5)
  1. CYCLOSPORINE [Suspect]
     Route: 065
     Dates: start: 20101218
  2. LASIX [Concomitant]
  3. MYCOPHENOLATE MOFETIL [Suspect]
     Route: 048
  4. MYCOPHENOLATE MOFETIL [Suspect]
     Route: 048
     Dates: start: 20101218
  5. PREDNISONE [Suspect]
     Route: 048
     Dates: start: 20101218

REACTIONS (3)
  - ASTHENIA [None]
  - ANAEMIA [None]
  - GAIT DISTURBANCE [None]
